FAERS Safety Report 11936482 (Version 1)
Quarter: 2016Q1

REPORT INFORMATION
  Report Type: Spontaneous
  Country: FR (occurrence: FR)
  Receive Date: 20160121
  Receipt Date: 20160121
  Transmission Date: 20160526
  Serious: Yes (Hospitalization)
  Sender: FDA-Public Use
  Company Number: FR-INDIVIOR LIMITED-INDV-087102-2016

PATIENT
  Age: 47 Year
  Sex: Male

DRUGS (5)
  1. SERESTA [Concomitant]
     Active Substance: OXAZEPAM
     Indication: PRODUCT USED FOR UNKNOWN INDICATION
     Dosage: ONE IN THE MORNING AND ONE IN THE EVENING
     Route: 065
  2. CANNABIS [Suspect]
     Active Substance: CANNABIS SATIVA SUBSP. INDICA TOP
     Indication: PRODUCT USED FOR UNKNOWN INDICATION
     Dosage: 10 TO 15 JOINT DAILY
     Route: 065
     Dates: start: 2014
  3. SUBUTEX [Suspect]
     Active Substance: BUPRENORPHINE HYDROCHLORIDE
     Indication: PRODUCT USED FOR UNKNOWN INDICATION
     Dosage: UNK
     Route: 055
     Dates: start: 2014
  4. ALCOHOL. [Suspect]
     Active Substance: ALCOHOL
     Indication: PRODUCT USED FOR UNKNOWN INDICATION
     Dosage: ONE BOTTLE DAILY DURING THE ENTIRE DAY
     Route: 065
     Dates: start: 2014
  5. STILNOX [Concomitant]
     Active Substance: ZOLPIDEM TARTRATE
     Indication: PRODUCT USED FOR UNKNOWN INDICATION
     Dosage: ONE AT BEDTIME
     Route: 065

REACTIONS (12)
  - Psychomotor skills impaired [Unknown]
  - Muscle contracture [Unknown]
  - Depression [Unknown]
  - Drug diversion [Unknown]
  - Suicidal ideation [Unknown]
  - Intentional product use issue [Unknown]
  - Anhedonia [Unknown]
  - Decreased appetite [Unknown]
  - Drug abuse [Unknown]
  - Neuropathy peripheral [Unknown]
  - Abulia [Unknown]
  - Sleep disorder [Unknown]

NARRATIVE: CASE EVENT DATE: 2014
